FAERS Safety Report 9812326 (Version 2)
Quarter: 2014Q1

REPORT INFORMATION
  Report Type: Spontaneous
  Country: US (occurrence: US)
  Receive Date: 20140113
  Receipt Date: 20140113
  Transmission Date: 20141002
  Serious: Yes (Other)
  Sender: FDA-Public Use
  Company Number: US-AMGEN-USASP2013067175

PATIENT
  Age: 32 Year
  Sex: Male
  Weight: 129 kg

DRUGS (6)
  1. NPLATE [Suspect]
     Indication: IMMUNE THROMBOCYTOPENIC PURPURA
     Dosage: 935, QWK
     Route: 058
     Dates: start: 20120327
  2. BUSPIRONE [Concomitant]
     Indication: DEPRESSION
     Dosage: 15 MG, TID
     Route: 048
  3. CLONAZEPAM [Concomitant]
     Indication: ANXIETY
     Dosage: 1 MG, TID
     Route: 048
  4. OXYCODONE AND ACETAMINOPHEN [Concomitant]
     Indication: PAIN
     Dosage: 5.325 MG
     Route: 048
  5. TIZANIDINE [Concomitant]
     Dosage: 4 MUG, UNK
  6. DEXAMETHASONE [Concomitant]

REACTIONS (3)
  - Splenomegaly [Not Recovered/Not Resolved]
  - Bone marrow reticulin fibrosis [Not Recovered/Not Resolved]
  - Platelet count decreased [Unknown]
